FAERS Safety Report 4789338-6 (Version None)
Quarter: 2005Q3

REPORT INFORMATION
  Report Type: 
  Country: None (occurrence: None)
  Receive Date: 20050929
  Receipt Date: 20050810
  Transmission Date: 20060218
  Serious: No
  Sender: FDA-Public Use
  Company Number: 05P-163-0308024-00

PATIENT
  Age: 55 Year
  Sex: Female
  Weight: 58.9676 kg

DRUGS (9)
  1. HUMIRA [Suspect]
     Indication: RHEUMATOID ARTHRITIS
     Dosage: 40 MG, 1 IN 2 WK, SUBCUTANEOUS
     Route: 058
     Dates: start: 20050629
  2. AZATHIOPRINE [Concomitant]
  3. PREDNISONE [Concomitant]
  4. ATORVASTATIN [Concomitant]
  5. ATENOLOL [Concomitant]
  6. TOCOPHEROL CONCENTRATE CAP [Concomitant]
  7. ASPIRIN [Concomitant]
  8. CALCIUM GLUCONATE [Concomitant]
  9. MULTI-VITAMINS [Concomitant]

REACTIONS (1)
  - RASH [None]
